FAERS Safety Report 8613880-0 (Version None)
Quarter: 2012Q3

REPORT INFORMATION
  Report Type: 
  Country: None (occurrence: None)
  Receive Date: 20120823
  Receipt Date: 20120810
  Transmission Date: 20120928
  Serious: Yes (Hospitalization, Other)
  Sender: FDA-Public Use
  Company Number: US-009507513-1208USA005139

PATIENT

DRUGS (2)
  1. ZOCOR [Suspect]
     Dosage: 80 MG
     Route: 048
     Dates: start: 20010729, end: 20060601
  2. ZOCOR [Suspect]
     Dosage: 80 MG
     Route: 048
     Dates: start: 20060907, end: 20100901

REACTIONS (23)
  - ACUTE MYOCARDIAL INFARCTION [None]
  - GASTROINTESTINAL HAEMORRHAGE [None]
  - NORMOCHROMIC NORMOCYTIC ANAEMIA [None]
  - DEHYDRATION [None]
  - CARDIAC OUTPUT DECREASED [None]
  - HELICOBACTER INFECTION [None]
  - HYPOKALAEMIA [None]
  - MUCOSAL ATROPHY [None]
  - ASTHENIA [None]
  - HYPOVOLAEMIA [None]
  - RENAL FAILURE ACUTE [None]
  - HYPONATRAEMIA [None]
  - HYPOTENSION [None]
  - DIVERTICULUM [None]
  - TROPONIN INCREASED [None]
  - TRANSAMINASES INCREASED [None]
  - PEPTIC ULCER [None]
  - RENAL FAILURE CHRONIC [None]
  - ANAEMIA [None]
  - HYPERKALAEMIA [None]
  - THROMBOCYTOPENIA [None]
  - RHABDOMYOLYSIS [None]
  - HAEMORRHOIDS [None]
